FAERS Safety Report 12256664 (Version 1)
Quarter: 2016Q2

REPORT INFORMATION
  Report Type: Spontaneous
  Country: US (occurrence: None)
  Receive Date: 20160411
  Receipt Date: 20160411
  Transmission Date: 20160815
  Serious: No
  Sender: FDA-Public Use
  Company Number: None

PATIENT
  Age: 37 Year
  Sex: Female
  Weight: 61.24 kg

DRUGS (1)
  1. AVELOX [Suspect]
     Active Substance: MOXIFLOXACIN HYDROCHLORIDE
     Indication: MYCOPLASMA GENITALIUM INFECTION
     Dates: start: 20160201, end: 20160205

REACTIONS (9)
  - Panic attack [None]
  - Anger [None]
  - Contusion [None]
  - Pain in extremity [None]
  - Impaired work ability [None]
  - Arthropathy [None]
  - Confusional state [None]
  - Peripheral swelling [None]
  - Arthralgia [None]

NARRATIVE: CASE EVENT DATE: 20160207
